FAERS Safety Report 10311116 (Version 1)
Quarter: 2014Q3

REPORT INFORMATION
  Report Type: Spontaneous
  Country: IN (occurrence: None)
  Receive Date: 20140715
  Receipt Date: 20140715
  Transmission Date: 20150326
  Serious: Yes (Other)
  Sender: FDA-Public Use
  Company Number: AUR-APL-2014-07340

PATIENT
  Age: 60 Year
  Sex: Female
  Weight: 58 kg

DRUGS (1)
  1. AMLODIPINE BESILATE [Suspect]
     Active Substance: AMLODIPINE BESYLATE
     Indication: HYPERTENSION

REACTIONS (12)
  - Photosensitivity reaction [None]
  - Blood glucose increased [None]
  - Ecchymosis [None]
  - Bleeding time shortened [None]
  - Capillary fragility test [None]
  - Purpura [None]
  - Petechiae [None]
  - Gingival bleeding [None]
  - Coagulation time shortened [None]
  - Condition aggravated [None]
  - Blood triglycerides increased [None]
  - Haemoglobin decreased [None]
